FAERS Safety Report 7385142-3 (Version None)
Quarter: 2011Q1

REPORT INFORMATION
  Report Type: 
  Country: None (occurrence: None)
  Receive Date: 20110330
  Receipt Date: 20110323
  Transmission Date: 20110831
  Serious: Yes (Hospitalization)
  Sender: FDA-Public Use
  Company Number: US-US-EMD SERONO, INC.-7044150

PATIENT
  Sex: Female

DRUGS (3)
  1. REBIF [Suspect]
     Indication: MULTIPLE SCLEROSIS
     Route: 058
     Dates: start: 20090701, end: 20110307
  2. CALCIUM [Concomitant]
  3. BACLOFEN [Concomitant]

REACTIONS (12)
  - WHITE BLOOD CELL COUNT DECREASED [None]
  - GAIT DISTURBANCE [None]
  - DIZZINESS [None]
  - HEADACHE [None]
  - OCULAR ICTERUS [None]
  - RED BLOOD CELL COUNT DECREASED [None]
  - HALLUCINATION [None]
  - TREMOR [None]
  - OCULAR HYPERAEMIA [None]
  - FATIGUE [None]
  - BODY TEMPERATURE DECREASED [None]
  - EAR PAIN [None]
